FAERS Safety Report 12844231 (Version 1)
Quarter: 2016Q4

REPORT INFORMATION
  Report Type: Spontaneous
  Country: US (occurrence: US)
  Receive Date: 20161012
  Receipt Date: 20161012
  Transmission Date: 20170207
  Serious: Yes (Hospitalization)
  Sender: FDA-Public Use
  Company Number: None

PATIENT
  Age: 65 Year
  Sex: Female
  Weight: 60.75 kg

DRUGS (1)
  1. HYOSCYAMINE. [Suspect]
     Active Substance: HYOSCYAMINE
     Indication: PRODUCT USED FOR UNKNOWN INDICATION
     Route: 048
     Dates: start: 20160725, end: 20160810

REACTIONS (10)
  - Dry mouth [None]
  - Headache [None]
  - Product quality issue [None]
  - Muscular weakness [None]
  - Drug effect decreased [None]
  - Type IV hypersensitivity reaction [None]
  - Product use issue [None]
  - Dysgeusia [None]
  - Vision blurred [None]
  - Balance disorder [None]

NARRATIVE: CASE EVENT DATE: 20160801
